FAERS Safety Report 15597702 (Version 1)
Quarter: 2018Q4

REPORT INFORMATION
  Report Type: Spontaneous
  Country: US (occurrence: US)
  Receive Date: 20181102
  Receipt Date: 20181102
  Transmission Date: 20190205
  Serious: Yes (Hospitalization)
  Sender: FDA-Public Use
  Company Number: None

PATIENT
  Age: 58 Year
  Sex: Male

DRUGS (14)
  1. ALBUTEROL. [Concomitant]
     Active Substance: ALBUTEROL
  2. LEVOTHYROXINE. [Concomitant]
     Active Substance: LEVOTHYROXINE
  3. MULTIVITAMIN WITH MINERALS [Concomitant]
     Active Substance: MINERALS\VITAMINS
  4. FUROSEMIDE. [Concomitant]
     Active Substance: FUROSEMIDE
  5. GABAPENTIN. [Concomitant]
     Active Substance: GABAPENTIN
  6. IPRATROPIUM-ALBUTEROL [Concomitant]
     Active Substance: ALBUTEROL\IPRATROPIUM
  7. AMLODIPINE [Concomitant]
     Active Substance: AMLODIPINE BESYLATE
  8. FLUTICASONE-SALMETEROL [Concomitant]
  9. MELATONIN [Concomitant]
     Active Substance: MELATONIN
  10. TIOTROPIUM [Concomitant]
     Active Substance: TIOTROPIUM
  11. MAVYRET [Suspect]
     Active Substance: GLECAPREVIR\PIBRENTASVIR
     Indication: HEPATITIS C
     Route: 048
     Dates: start: 20180514, end: 20180718
  12. DOCUSATE SODIUM. [Concomitant]
     Active Substance: DOCUSATE SODIUM
  13. METHADONE [Concomitant]
     Active Substance: METHADONE HYDROCHLORIDE
  14. TAMSULOSIN [Concomitant]
     Active Substance: TAMSULOSIN

REACTIONS (2)
  - Chronic obstructive pulmonary disease [None]
  - Dyspnoea [None]

NARRATIVE: CASE EVENT DATE: 20180607
